FAERS Safety Report 8889265 (Version 2)
Quarter: 2013Q1

REPORT INFORMATION
  Report Type: Spontaneous
  Country: FR (occurrence: FR)
  Receive Date: 20121106
  Receipt Date: 20130109
  Transmission Date: 20140127
  Serious: No
  Sender: FDA-Public Use
  Company Number: FR-JNJFOC-20121015762

PATIENT
  Sex: Male
  Weight: 120 kg

DRUGS (1)
  1. DUROGESIC [Suspect]
     Indication: PAIN
     Route: 062

REACTIONS (3)
  - Product quality issue [Recovered/Resolved]
  - Pain [Recovered/Resolved]
  - Poor quality drug administered [Recovered/Resolved]
